FAERS Safety Report 25961967 (Version 2)
Quarter: 2025Q4

REPORT INFORMATION
  Report Type: Spontaneous
  Country: IN (occurrence: IN)
  Receive Date: 20251027
  Receipt Date: 20251030
  Transmission Date: 20260117
  Serious: Yes (Hospitalization, Other)
  Sender: REGENERON
  Company Number: IN-BAYER-2025A139616

PATIENT
  Sex: Male

DRUGS (10)
  1. EYLEA [Suspect]
     Active Substance: AFLIBERCEPT
     Indication: Diabetic retinopathy
     Dosage: UNK, ONCE-LEFT EYE (BOTH EYES ARE TREATED), SOLUTION FOR INJECTION, 40 MG/ML
     Route: 031
     Dates: start: 20240605, end: 20240605
  2. EYLEA [Suspect]
     Active Substance: AFLIBERCEPT
     Indication: Diabetic retinal oedema
     Dosage: UNK, ONCE-RIGHT EYE (BOTH EYES ARE TREATED), SOLUTION FOR INJECTION, 40 MG/ML
     Dates: start: 20240615, end: 20240615
  3. EYLEA [Suspect]
     Active Substance: AFLIBERCEPT
     Dosage: UNK, ONCE-LEFT EYE, SOLUTION FOR INJECTION, 40MG/ML
     Route: 031
     Dates: start: 20240708, end: 20240708
  4. EYLEA [Suspect]
     Active Substance: AFLIBERCEPT
     Dosage: UNK, ONCE-RIGHT EYE, SOLUTION FOR INJECTION, 40MG/ML
     Dates: start: 202502, end: 202502
  5. EYLEA [Suspect]
     Active Substance: AFLIBERCEPT
     Dosage: UNK, ONCE-RIGHT EYE, SOLUTION FOR INJECTION, 40MG/ML
     Dates: start: 202504, end: 202504
  6. EYLEA [Suspect]
     Active Substance: AFLIBERCEPT
     Dosage: UNK, ONCE-LEFT EYE, SOLUTION FOR INJECTION, 40MG/ML
     Route: 031
     Dates: start: 20250816, end: 20250816
  7. EYLEA [Suspect]
     Active Substance: AFLIBERCEPT
     Dosage: UNK, ONCE-RIGHT EYE, SOLUTION FOR INJECTION, 40MG/ML
     Route: 031
     Dates: start: 20250823, end: 20250823
  8. EYLEA [Suspect]
     Active Substance: AFLIBERCEPT
     Dosage: UNK, ONCE, SOLUTION FOR INJECTION, 40 MG/ML
     Route: 031
     Dates: start: 202509, end: 202509
  9. EYLEA [Suspect]
     Active Substance: AFLIBERCEPT
     Dosage: 2 MG, ONCE-RIGHT EYE, SOLUTION FOR INJECTION, 40 MG/ML
     Route: 031
     Dates: start: 20250925, end: 20250925
  10. EYLEA [Suspect]
     Active Substance: AFLIBERCEPT
     Dosage: UNK, ONCE-RIGHT EYE, SOLUTION FOR INJECTION, 40MG/ML
     Dates: start: 202510, end: 202510

REACTIONS (8)
  - Macular thickening [Recovering/Resolving]
  - Retinal vascular disorder [Recovering/Resolving]
  - Cystoid macular oedema [Recovering/Resolving]
  - Macular ischaemia [Recovering/Resolving]
  - Macular ischaemia [Not Recovered/Not Resolved]
  - Cataract operation [Unknown]
  - Visual impairment [Unknown]
  - Retinal laser coagulation [Unknown]

NARRATIVE: CASE EVENT DATE: 20240705
